FAERS Safety Report 4338697-7 (Version None)
Quarter: 2004Q2

REPORT INFORMATION
  Report Type: 
  Country: None (occurrence: None)
  Receive Date: 20040409
  Receipt Date: 20040305
  Transmission Date: 20050107
  Serious: No
  Sender: FDA-Public Use
  Company Number: A02200400946

PATIENT
  Age: 49 Year
  Sex: Female

DRUGS (10)
  1. XATRAL - SLOW RELEASE - (ALFUZOSIN HYDROCHLORIDE) - TABLET PR - 5 MG [Suspect]
     Indication: ENURESIS
     Dosage: 5 MG OD ORAL
     Route: 048
     Dates: start: 20040304, end: 20040307
  2. DITROPAN [Concomitant]
  3. PREDNISOLONE [Concomitant]
  4. NEORAL [Concomitant]
  5. CELLCEPT [Concomitant]
  6. TORENTAL (PENTOXIFYLLINE) [Concomitant]
  7. DIOSMIN [Concomitant]
  8. AMITRIPTYLINE HYDROCHLORIDE [Concomitant]
  9. INSULIN MONOTARD (INSULIN ZINC SUSPENSION) [Concomitant]
  10. UN ALPHA (ALFACALCIDOL) [Concomitant]

REACTIONS (1)
  - ANURIA [None]
